FAERS Safety Report 9758726 (Version 1)
Quarter: 2013Q4

REPORT INFORMATION
  Report Type: Spontaneous
  Country: US (occurrence: None)
  Receive Date: 20131216
  Receipt Date: 20131216
  Transmission Date: 20140711
  Serious: Yes (Other)
  Sender: FDA-Public Use
  Company Number: 058345

PATIENT
  Age: 67 Year
  Sex: Female
  Weight: 49 kg

DRUGS (1)
  1. CIMZIA [Suspect]
     Indication: CROHN^S DISEASE
     Dosage: (400 MG 1X/2 WEEKS, 400 MG EVERY 2 WEEKS, 0, 2, 4. SUBCUTANEOUS)

REACTIONS (3)
  - Hypoaesthesia [None]
  - Fluid retention [None]
  - Motor dysfunction [None]
